FAERS Safety Report 10527811 (Version 2)
Quarter: 2014Q4

REPORT INFORMATION
  Report Type: Spontaneous
  Country: US (occurrence: US)
  Receive Date: 20141020
  Receipt Date: 20141110
  Transmission Date: 20150528
  Serious: Yes (Disabling, Other)
  Sender: FDA-Public Use
  Company Number: US-009507513-1410USA007938

PATIENT
  Age: 23 Year
  Sex: Female
  Weight: 91.16 kg

DRUGS (1)
  1. NUVARING [Suspect]
     Active Substance: ETHINYL ESTRADIOL\ETONOGESTREL
     Indication: OVARIAN CYST
     Dosage: AS PER THE PRESCRIBING INFORMATION
     Route: 067
     Dates: start: 201401, end: 201405

REACTIONS (10)
  - Seizure [Unknown]
  - Product use issue [Not Recovered/Not Resolved]
  - Anxiety [Unknown]
  - Dysphagia [Unknown]
  - Disability [Not Recovered/Not Resolved]
  - Amnesia [Not Recovered/Not Resolved]
  - Dizziness [Unknown]
  - Syncope [Recovered/Resolved]
  - Migraine [Not Recovered/Not Resolved]
  - Abasia [Unknown]

NARRATIVE: CASE EVENT DATE: 20140413
